FAERS Safety Report 8229181-9 (Version None)
Quarter: 2012Q1

REPORT INFORMATION
  Report Type: 
  Country: None (occurrence: None)
  Receive Date: 20120322
  Receipt Date: 20120213
  Transmission Date: 20120608
  Serious: No
  Sender: FDA-Public Use
  Company Number: US-MYLANLABS-2012S1003398

PATIENT
  Sex: Female

DRUGS (4)
  1. ALVESCO [Concomitant]
  2. SINGULAIR [Concomitant]
  3. LEVALBUTEROL HCL [Suspect]
     Route: 055
     Dates: start: 20120211
  4. PREDNISONE TAB [Concomitant]

REACTIONS (1)
  - RASH [None]
